FAERS Safety Report 22591528 (Version 6)
Quarter: 2024Q3

REPORT INFORMATION
  Report Type: Spontaneous
  Country: US (occurrence: US)
  Receive Date: 20230612
  Receipt Date: 20240703
  Transmission Date: 20241017
  Serious: No
  Sender: BAUSCH AND LOMB
  Company Number: US-BAUSCHBL-2023BNL004830

PATIENT
  Age: 63 Year
  Sex: Female
  Weight: 50.848 kg

DRUGS (5)
  1. ERYTHROMYCIN [Suspect]
     Active Substance: ERYTHROMYCIN
     Indication: Corneal erosion
     Dosage: INTERMITTENTLY SINCE 1995 BUT FOR THE PAST TWO YEARS, SHE HAS BEEN USING IT ROUTINELY
     Route: 047
     Dates: start: 1995
  2. ERYTHROMYCIN [Suspect]
     Active Substance: ERYTHROMYCIN
     Route: 047
     Dates: start: 2021
  3. ERYTHROMYCIN [Suspect]
     Active Substance: ERYTHROMYCIN
     Dosage: EVERY 4 HOURS FOR A COUPLE DAYS FOR TREATMENT.
     Route: 047
     Dates: start: 20230601, end: 20230604
  4. ERYTHROMYCIN [Suspect]
     Active Substance: ERYTHROMYCIN
     Dosage: EVERY 4 HOURS FOR A COUPLE DAYS FOR TREATMENT.
     Route: 047
     Dates: start: 20230604
  5. REFRESH OPTIVE [Concomitant]
     Active Substance: CARBOXYMETHYLCELLULOSE SODIUM\GLYCERIN
     Indication: Dry eye
     Dosage: EVERY 4 HOURS DURING THE DAY

REACTIONS (11)
  - Foreign body sensation in eyes [Recovered/Resolved]
  - Ocular hyperaemia [Recovered/Resolved]
  - Eye irritation [Recovered/Resolved]
  - Burning sensation [Unknown]
  - Discomfort [Unknown]
  - Product quality issue [Unknown]
  - Inappropriate schedule of product administration [Unknown]
  - Accidental exposure to product [Unknown]
  - Exposure via skin contact [Unknown]
  - Product container issue [Unknown]
  - Suspected product contamination [Unknown]

NARRATIVE: CASE EVENT DATE: 20230601
